FAERS Safety Report 16860893 (Version 1)
Quarter: 2019Q3

REPORT INFORMATION
  Report Type: Report from Study
  Country: FR (occurrence: FR)
  Receive Date: 20190927
  Receipt Date: 20190927
  Transmission Date: 20191005
  Serious: Yes (Hospitalization, Other)
  Sender: FDA-Public Use
  Company Number: FR-ZYDUS-040974

PATIENT
  Age: 66 Year
  Sex: Male
  Weight: 97 kg

DRUGS (11)
  1. JAKAVI [Suspect]
     Active Substance: RUXOLITINIB
     Indication: MYELOFIBROSIS
     Dosage: 10 MG, DAILY
     Route: 048
     Dates: start: 20190429, end: 20190524
  2. NEBIVOLOL/NEBIVOLOL HYDROCHLORIDE [Concomitant]
     Indication: PRODUCT USED FOR UNKNOWN INDICATION
     Dosage: 2.5 TABLET NO UNITS PROVIDED
     Route: 048
     Dates: start: 2013
  3. ACETYLSALICYLIC ACID [Concomitant]
     Active Substance: ASPIRIN
     Route: 048
     Dates: start: 2013, end: 20190429
  4. LEVOTHYROXINE. [Concomitant]
     Active Substance: LEVOTHYROXINE
     Dosage: 225 NO UNITS PROVIDED
     Route: 048
     Dates: start: 2013
  5. FUROSEMIDE/FUROSEMIDE SODIUM/FUROSEMIDE XANTINOL [Concomitant]
     Dosage: 20 TABLET NO UNITS PROVIDED
     Route: 048
     Dates: start: 2013
  6. NEBIVOLOL/NEBIVOLOL HYDROCHLORIDE [Concomitant]
     Dosage: 2.5 TABLET NO UNITS PROVIDED
     Route: 048
     Dates: start: 2013
  7. AMLODIPINE [Suspect]
     Active Substance: AMLODIPINE BESYLATE
     Indication: PRODUCT USED FOR UNKNOWN INDICATION
     Dosage: 5 TABLET
     Route: 048
     Dates: start: 20190527, end: 20190530
  8. NEBIVOLOL/NEBIVOLOL HYDROCHLORIDE [Concomitant]
     Indication: PRODUCT USED FOR UNKNOWN INDICATION
     Dosage: 2.5 TABLET NO UNITS PROVIDED
     Route: 048
     Dates: start: 2013
  9. FUROSEMIDE/FUROSEMIDE SODIUM/FUROSEMIDE XANTINOL [Concomitant]
     Indication: PRODUCT USED FOR UNKNOWN INDICATION
     Dosage: 20 TABLET NO UNITS PROVIDED
     Route: 048
     Dates: start: 2013
  10. PERINDOPRIL/PERINDOPRIL ERBUMINE [Concomitant]
     Dosage: 8 TABLET NO UNITS PROVIDED
     Route: 048
  11. PERINDOPRIL/PERINDOPRIL ERBUMINE [Concomitant]
     Dosage: 8 TABLET NO UNITS PROVIDED
     Route: 048

REACTIONS (3)
  - Thrombocytopenia [Recovering/Resolving]
  - Anaemia [Recovering/Resolving]
  - White blood cell count increased [Unknown]

NARRATIVE: CASE EVENT DATE: 20190524
